FAERS Safety Report 15098211 (Version 1)
Quarter: 2018Q2

REPORT INFORMATION
  Report Type: Spontaneous
  Country: US (occurrence: US)
  Receive Date: 20180611
  Receipt Date: 20180611
  Transmission Date: 20180711
  Serious: Yes (Hospitalization)
  Sender: FDA-Public Use
  Company Number: None

PATIENT
  Age: 51 Year
  Sex: Male

DRUGS (10)
  1. LEVETIRACETAM. [Concomitant]
     Active Substance: LEVETIRACETAM
  2. LASIX [Concomitant]
     Active Substance: FUROSEMIDE
  3. BENZONATATE. [Concomitant]
     Active Substance: BENZONATATE
  4. CARVEDILOL. [Concomitant]
     Active Substance: CARVEDILOL
  5. DIGOXIN. [Concomitant]
     Active Substance: DIGOXIN
  6. ONDANSETRON [Concomitant]
     Active Substance: ONDANSETRON
  7. DEXAMETHASONE. [Concomitant]
     Active Substance: DEXAMETHASONE
  8. MORPHINE [Concomitant]
     Active Substance: MORPHINE
  9. TEMOZOLOMIDE 5 MG [Suspect]
     Active Substance: TEMOZOLOMIDE
     Indication: NEOPLASM MALIGNANT
     Route: 048
     Dates: start: 20180220, end: 20180516
  10. NORCO [Concomitant]
     Active Substance: ACETAMINOPHEN\HYDROCODONE BITARTRATE

REACTIONS (1)
  - Hospice care [None]

NARRATIVE: CASE EVENT DATE: 20180516
